APPROVED DRUG PRODUCT: FOSAPREPITANT DIMEGLUMINE
Active Ingredient: FOSAPREPITANT DIMEGLUMINE
Strength: EQ 150MG BASE/VIAL
Dosage Form/Route: POWDER;INTRAVENOUS
Application: N210064 | Product #001
Applicant: TEVA PHARMACEUTICALS USA
Approved: Sep 5, 2019 | RLD: No | RS: No | Type: RX